FAERS Safety Report 4456694-8 (Version None)
Quarter: 2004Q3

REPORT INFORMATION
  Report Type: 
  Country: None (occurrence: None)
  Receive Date: 20040921
  Receipt Date: 20040908
  Transmission Date: 20050211
  Serious: Yes (Other)
  Sender: FDA-Public Use
  Company Number: 2004063989

PATIENT
  Sex: Female

DRUGS (2)
  1. ZOLOFT [Suspect]
     Indication: ILL-DEFINED DISORDER
     Dosage: 100 MG (1 IN 1 D)
  2. TOPIRAMATE [Suspect]
     Indication: ILL-DEFINED DISORDER
     Dosage: 250 MG (1 IN 1 D)

REACTIONS (2)
  - DRUG EXPOSURE DURING PREGNANCY [None]
  - STILLBIRTH [None]
